FAERS Safety Report 7152809-1 (Version None)
Quarter: 2010Q4

REPORT INFORMATION
  Report Type: 
  Country: None (occurrence: None)
  Receive Date: 20101213
  Receipt Date: 20101129
  Transmission Date: 20110411
  Serious: Yes (Other)
  Sender: FDA-Public Use
  Company Number: PHHY2010KR81519

PATIENT
  Sex: Male

DRUGS (8)
  1. EXJADE [Suspect]
     Indication: APLASTIC ANAEMIA
     Dosage: 375 MG, UNK
     Route: 048
     Dates: start: 20071231, end: 20090202
  2. EXJADE [Suspect]
     Dosage: 500 MG, UNK
     Route: 048
     Dates: start: 20090603, end: 20090817
  3. EXJADE [Suspect]
     Dosage: 500 MG, UNK
     Route: 048
     Dates: start: 20100325, end: 20100327
  4. BISOLVON [Concomitant]
     Indication: NASOPHARYNGITIS
     Dosage: 4 MG, TID
     Route: 048
     Dates: start: 20100324, end: 20100401
  5. PHENIRAMINE [Concomitant]
     Indication: NASOPHARYNGITIS
     Dosage: 1 MG, TID
     Route: 048
     Dates: start: 20100324, end: 20100401
  6. VARIDASE [Concomitant]
     Indication: NASOPHARYNGITIS
     Dosage: 0.5 TSP, TID
     Route: 048
     Dates: start: 20100324, end: 20100401
  7. OMNICEF [Concomitant]
     Indication: NASOPHARYNGITIS
     Dosage: UNK
     Route: 048
     Dates: start: 20100324, end: 20100401
  8. TRILEPTAL [Concomitant]
     Indication: CONVULSION
     Dosage: 3 MG, BID
     Dates: start: 20090923

REACTIONS (6)
  - BONE MARROW TRANSPLANT [None]
  - GENERAL PHYSICAL HEALTH DETERIORATION [None]
  - PRURITUS [None]
  - PYREXIA [None]
  - RASH [None]
  - SKIN EXFOLIATION [None]
